FAERS Safety Report 10748189 (Version 2)
Quarter: 2015Q2

REPORT INFORMATION
  Report Type: Spontaneous
  Country: US (occurrence: None)
  Receive Date: 20150120
  Receipt Date: 20150420
  Transmission Date: 20150821
  Serious: No
  Sender: FDA-Public Use
  Company Number: AEGR001026

PATIENT
  Age: 69 Year
  Sex: Male
  Weight: 97.5 kg

DRUGS (8)
  1. OMEGA 3 6 9 (OMEGA 9 FATTY ACIDS, OMEGA-3 FATTY ACIDS, OMEGA-6 FATTY ACIDS) [Concomitant]
  2. VITAMIN B (VITAMIN B COMPLEX) [Concomitant]
  3. VITAMIN E (TOCOPHERYL ACETATE) [Concomitant]
  4. METOPROLOL (METOPROLOL TARTRATE) [Concomitant]
     Active Substance: METOPROLOL TARTRATE
  5. ASPIRIN (ACETYLSALICYLIC ACID) [Concomitant]
     Active Substance: ASPIRIN
  6. JUXTAPID [Suspect]
     Active Substance: LOMITAPIDE MESYLATE
     Indication: TYPE IIA HYPERLIPIDAEMIA
     Route: 048
     Dates: start: 20140820, end: 201411
  7. CO Q10 (UBIDECARENONE) [Concomitant]
  8. ENALAPRIL [Concomitant]
     Active Substance: ENALAPRIL

REACTIONS (2)
  - Hepatic enzyme increased [None]
  - Blood cholesterol increased [None]

NARRATIVE: CASE EVENT DATE: 201409
